FAERS Safety Report 13660997 (Version 2)
Quarter: 2017Q3

REPORT INFORMATION
  Report Type: Spontaneous
  Country: US (occurrence: US)
  Receive Date: 20170616
  Receipt Date: 20170714
  Transmission Date: 20171127
  Serious: Yes (Disabling, Other)
  Sender: FDA-Public Use
  Company Number: US-BRISTOL-MYERS SQUIBB COMPANY-BMS-2017-050841

PATIENT
  Sex: Male

DRUGS (4)
  1. ABILIFY [Suspect]
     Active Substance: ARIPIPRAZOLE
     Indication: MAJOR DEPRESSION
     Route: 065
  2. ABILIFY [Suspect]
     Active Substance: ARIPIPRAZOLE
     Indication: BIPOLAR DISORDER
     Dosage: 2 MG, UNK
     Route: 065
     Dates: start: 2012, end: 2016
  3. ABILIFY [Suspect]
     Active Substance: ARIPIPRAZOLE
     Indication: OBSESSIVE-COMPULSIVE DISORDER
     Route: 065
  4. ABILIFY [Suspect]
     Active Substance: ARIPIPRAZOLE
     Indication: ANXIETY
     Route: 065

REACTIONS (12)
  - Disability [Unknown]
  - Injury [Unknown]
  - Bankruptcy [Unknown]
  - Condition aggravated [Unknown]
  - Economic problem [Unknown]
  - Anxiety [Unknown]
  - Gambling [Unknown]
  - Emotional distress [Unknown]
  - Eating disorder [Unknown]
  - Anhedonia [Unknown]
  - Weight increased [Unknown]
  - Pain [Unknown]
